FAERS Safety Report 13627442 (Version 1)
Quarter: 2017Q2

REPORT INFORMATION
  Report Type: Spontaneous
  Country: US (occurrence: US)
  Receive Date: 20170531
  Receipt Date: 20170531
  Transmission Date: 20170830
  Serious: Yes (Other)
  Sender: FDA-Public Use
  Company Number: US-ASTELLAS-1493715

PATIENT
  Age: 77 Year
  Sex: Female

DRUGS (19)
  1. PATANOL [Concomitant]
     Active Substance: OLOPATADINE HYDROCHLORIDE
  2. NASONEX [Concomitant]
     Active Substance: MOMETASONE FUROATE
  3. GILOTRIF [Concomitant]
     Active Substance: AFATINIB
  4. LEVOFLOXACIN. [Concomitant]
     Active Substance: LEVOFLOXACIN
  5. COLCRYS [Concomitant]
     Active Substance: COLCHICINE
     Route: 065
  6. ONDASETRON [Concomitant]
     Active Substance: ONDANSETRON
  7. OMEPRAZOLE. [Concomitant]
     Active Substance: OMEPRAZOLE
  8. CLARITHROMYCIN. [Concomitant]
     Active Substance: CLARITHROMYCIN
  9. TARCEVA [Suspect]
     Active Substance: ERLOTINIB HYDROCHLORIDE
     Indication: LUNG NEOPLASM MALIGNANT
     Dosage: THE PATIENT WAS ON THERAPY FROM LAST 4 YEARS.
     Route: 048
     Dates: start: 2010
  10. MONTELUKAST [Concomitant]
     Active Substance: MONTELUKAST SODIUM
     Route: 065
  11. LOSARTAN. [Concomitant]
     Active Substance: LOSARTAN
  12. PREDNISONE. [Concomitant]
     Active Substance: PREDNISONE
     Route: 065
  13. AMLODIPINE [Concomitant]
     Active Substance: AMLODIPINE BESYLATE
     Route: 065
  14. PREDNISONE. [Concomitant]
     Active Substance: PREDNISONE
  15. PANTOPRAZOLE [Concomitant]
     Active Substance: PANTOPRAZOLE
  16. TARCEVA [Suspect]
     Active Substance: ERLOTINIB HYDROCHLORIDE
     Indication: LUNG NEOPLASM MALIGNANT
     Route: 048
     Dates: start: 20140425, end: 20141201
  17. UREA. [Concomitant]
     Active Substance: UREA
  18. SIMETHICONE (DIMETHICONE) [Concomitant]
     Active Substance: DIMETHICONE
  19. AMOXICILLIN. [Concomitant]
     Active Substance: AMOXICILLIN

REACTIONS (2)
  - Gastric infection [Unknown]
  - Haematochezia [Recovered/Resolved]

NARRATIVE: CASE EVENT DATE: 20141113
